FAERS Safety Report 7214951-6 (Version None)
Quarter: 2011Q1

REPORT INFORMATION
  Report Type: 
  Country: None (occurrence: None)
  Receive Date: 20110107
  Receipt Date: 20100603
  Transmission Date: 20110831
  Serious: No
  Sender: FDA-Public Use
  Company Number: A0862758A

PATIENT
  Sex: Female

DRUGS (1)
  1. LOVAZA [Suspect]
     Indication: PROPHYLAXIS
     Dosage: 1CAP TWICE PER DAY
     Route: 048
     Dates: start: 20100501

REACTIONS (3)
  - OEDEMA [None]
  - ABDOMINAL DISTENSION [None]
  - MALAISE [None]
